FAERS Safety Report 15590226 (Version 1)
Quarter: 2018Q4

REPORT INFORMATION
  Report Type: Spontaneous
  Country: US (occurrence: US)
  Receive Date: 20181101
  Receipt Date: 20181101
  Transmission Date: 20190205
  Serious: No
  Sender: FDA-Public Use
  Company Number: None

PATIENT
  Age: 56 Year
  Sex: Female
  Weight: 133.81 kg

DRUGS (3)
  1. RASUVO [Suspect]
     Active Substance: METHOTREXATE SODIUM
     Indication: VITAMIN D DEFICIENCY
     Dosage: OTHER DOSE: 20MG (0.4ML)
     Route: 058
     Dates: start: 201807
  2. RASUVO [Suspect]
     Active Substance: METHOTREXATE SODIUM
     Indication: PRODUCT USED FOR UNKNOWN INDICATION
     Dosage: OTHER DOSE: 20MG (0.4ML)
     Route: 058
     Dates: start: 201807
  3. RASUVO [Suspect]
     Active Substance: METHOTREXATE SODIUM
     Indication: RHEUMATOID ARTHRITIS
     Dosage: OTHER DOSE: 20MG (0.4ML)
     Route: 058
     Dates: start: 201807

REACTIONS (2)
  - Therapy cessation [None]
  - Malaise [None]
